FAERS Safety Report 16532377 (Version 1)
Quarter: 2019Q3

REPORT INFORMATION
  Report Type: Spontaneous
  Country: US (occurrence: US)
  Receive Date: 20190704
  Receipt Date: 20190704
  Transmission Date: 20191004
  Serious: No
  Sender: FDA-Public Use
  Company Number: US-TEVA-2019-US-1062615

PATIENT
  Sex: Male

DRUGS (1)
  1. CLONAZEPAM ACTAVIS [Suspect]
     Active Substance: CLONAZEPAM
     Indication: PANIC ATTACK

REACTIONS (5)
  - Drug ineffective [Unknown]
  - Feeling jittery [Unknown]
  - Tremor [Unknown]
  - Mental disorder [Unknown]
  - Product substitution issue [Unknown]
